FAERS Safety Report 7374720-3 (Version None)
Quarter: 2011Q1

REPORT INFORMATION
  Report Type: 
  Country: None (occurrence: None)
  Receive Date: 20110325
  Receipt Date: 20101001
  Transmission Date: 20110831
  Serious: No
  Sender: FDA-Public Use
  Company Number: US-MYLANLABS-2010S1016240

PATIENT
  Age: 55 Year
  Sex: Female
  Weight: 54.43 kg

DRUGS (4)
  1. ZOLOFT [Concomitant]
  2. VYVANSE [Concomitant]
  3. ROXICODONE [Concomitant]
  4. FENTANYL-100 [Suspect]
     Indication: FIBROMYALGIA
     Dosage: Q48H
     Route: 062
     Dates: start: 20080101

REACTIONS (5)
  - NAUSEA [None]
  - PAIN [None]
  - CHEST DISCOMFORT [None]
  - HYPOAESTHESIA [None]
  - SENSATION OF HEAVINESS [None]
